FAERS Safety Report 9586434 (Version 1)
Quarter: 2013Q4

REPORT INFORMATION
  Report Type: Spontaneous
  Country: US (occurrence: US)
  Receive Date: 20131003
  Receipt Date: 20131003
  Transmission Date: 20140711
  Serious: Yes (Other)
  Sender: FDA-Public Use
  Company Number: US-PFIZER INC-2013281818

PATIENT
  Age: 47 Year
  Sex: Male
  Weight: 68.03 kg

DRUGS (3)
  1. LYRICA [Suspect]
     Indication: DIABETIC NEUROPATHY
     Dosage: 150 MG, 2X/DAY
     Route: 048
  2. GABAPENTIN [Suspect]
     Dosage: UNK
  3. CLONAZEPAM [Concomitant]
     Dosage: UNK

REACTIONS (12)
  - Testicular abscess [Unknown]
  - Bone disorder [Unknown]
  - Musculoskeletal disorder [Unknown]
  - Bedridden [Unknown]
  - Local swelling [Unknown]
  - Joint swelling [Unknown]
  - Abdominal distension [Unknown]
  - Speech disorder [Unknown]
  - Gait disturbance [Unknown]
  - Insomnia [Unknown]
  - Dysstasia [Unknown]
  - Drug ineffective [Unknown]
